FAERS Safety Report 9609609 (Version 1)
Quarter: 2013Q4

REPORT INFORMATION
  Report Type: Spontaneous
  Country: US (occurrence: None)
  Receive Date: 20131008
  Receipt Date: 20131008
  Transmission Date: 20140711
  Serious: Yes (Hospitalization)
  Sender: FDA-Public Use
  Company Number: None

PATIENT
  Age: 64 Year
  Sex: Male
  Weight: 102.3 kg

DRUGS (2)
  1. WARFARIN [Suspect]
     Indication: THROMBOSIS
     Dosage: UNKNOWN MG EVERYDAY ORAL
     Route: 048
     Dates: start: 20130815
  2. ENOXAPARIN [Suspect]
     Dosage: UNKNOWN ML SUB Q
     Dates: start: 20130815

REACTIONS (13)
  - Abdominal wall haematoma [None]
  - Renal failure acute [None]
  - Dehydration [None]
  - Retroperitoneal haematoma [None]
  - Abdominal pain [None]
  - Asthenia [None]
  - Hyperhidrosis [None]
  - Pollakiuria [None]
  - International normalised ratio increased [None]
  - Hypotension [None]
  - Hyperkalaemia [None]
  - Sepsis [None]
  - Nausea [None]
